FAERS Safety Report 5055146-4 (Version None)
Quarter: 2006Q3

REPORT INFORMATION
  Report Type: 
  Country: None (occurrence: None)
  Receive Date: 20060714
  Receipt Date: 20060710
  Transmission Date: 20061208
  Serious: Yes (Hospitalization)
  Sender: FDA-Public Use
  Company Number: 146495USA

PATIENT
  Age: 81 Year
  Sex: Female

DRUGS (1)
  1. PIMOZIDE [Suspect]
     Dosage: 4 MILLIGRAM ORAL
     Route: 048
     Dates: start: 20010615, end: 20060608

REACTIONS (4)
  - ESCHERICHIA SEPSIS [None]
  - FALL [None]
  - MALAISE [None]
  - VOMITING [None]
